FAERS Safety Report 13559679 (Version 1)
Quarter: 2017Q2

REPORT INFORMATION
  Report Type: Other
  Country: DE (occurrence: DE)
  Receive Date: 20170518
  Receipt Date: 20170518
  Transmission Date: 20170830
  Serious: Yes (Hospitalization)
  Sender: FDA-Public Use
  Company Number: DE-LUPIN PHARMACEUTICALS INC.-E2B_00006701

PATIENT
  Age: 39 Year
  Sex: Female

DRUGS (12)
  1. ARIPIPRAZOL [Suspect]
     Active Substance: ARIPIPRAZOLE
     Dosage: UNK UNK,UNK,
     Route: 048
     Dates: start: 20160121
  2. ARIPIPRAZOL [Suspect]
     Active Substance: ARIPIPRAZOLE
     Indication: MENTAL DISORDER
     Dosage: UNK UNK,UNK,
     Route: 048
     Dates: start: 20160103, end: 20160106
  3. QUETIAPINE. [Suspect]
     Active Substance: QUETIAPINE
     Dosage: UNK UNK,UNK,
     Route: 048
     Dates: start: 20160128, end: 20160128
  4. QUETIAPINE. [Suspect]
     Active Substance: QUETIAPINE
     Dosage: UNK UNK,UNK,
     Route: 048
     Dates: start: 20160205
  5. QUETIAPINE. [Suspect]
     Active Substance: QUETIAPINE
     Dosage: UNK UNK,UNK,
     Route: 048
     Dates: start: 20160109, end: 20160118
  6. QUETIAPINE. [Suspect]
     Active Substance: QUETIAPINE
     Indication: MENTAL DISORDER
     Dosage: UNK UNK,UNK,
     Route: 048
     Dates: start: 20160107
  7. QUETIAPINE. [Suspect]
     Active Substance: QUETIAPINE
     Dosage: UNK UNK,UNK,
     Route: 048
     Dates: start: 20160125, end: 20160127
  8. ARIPIPRAZOL [Suspect]
     Active Substance: ARIPIPRAZOLE
     Dosage: UNK UNK,UNK,
     Route: 048
     Dates: start: 20160107, end: 20160120
  9. QUETIAPINE. [Suspect]
     Active Substance: QUETIAPINE
     Dosage: UNK UNK,UNK,
     Route: 048
     Dates: start: 20160119, end: 20160124
  10. QUETIAPINE. [Suspect]
     Active Substance: QUETIAPINE
     Dosage: UNK UNK,UNK,
     Route: 048
     Dates: start: 20160108
  11. QUETIAPINE. [Suspect]
     Active Substance: QUETIAPINE
     Dosage: UNK UNK,UNK,
     Route: 048
     Dates: start: 20160129, end: 20160129
  12. QUETIAPINE. [Suspect]
     Active Substance: QUETIAPINE
     Dosage: 400 MG,UNK,UNKNOWN
     Route: 048
     Dates: start: 20160130, end: 20160204

REACTIONS (1)
  - Dyskinesia [Recovered/Resolved]

NARRATIVE: CASE EVENT DATE: 20160120
